FAERS Safety Report 9495563 (Version 2)
Quarter: 2013Q3

REPORT INFORMATION
  Report Type: Spontaneous
  Country: AR (occurrence: AR)
  Receive Date: 20130903
  Receipt Date: 20130927
  Transmission Date: 20140515
  Serious: Yes (Other)
  Sender: FDA-Public Use
  Company Number: AR-AMGEN-ARGSP2013061919

PATIENT
  Age: 45 Year
  Sex: Female

DRUGS (1)
  1. ENBREL [Suspect]
     Indication: RHEUMATOID ARTHRITIS
     Dosage: 50 MG, WEEKLY
     Route: 058
     Dates: start: 20110304, end: 2013

REACTIONS (9)
  - Tibia fracture [Recovering/Resolving]
  - Fibula fracture [Recovering/Resolving]
  - Bronchial disorder [Recovered/Resolved]
  - Loose tooth [Unknown]
  - Skin reaction [Unknown]
  - Rheumatoid arthritis [Unknown]
  - Syncope [Recovered/Resolved]
  - Fall [Recovering/Resolving]
  - Drug ineffective [Unknown]
